FAERS Safety Report 19208846 (Version 1)
Quarter: 2021Q2

REPORT INFORMATION
  Report Type: Spontaneous
  Country: RU (occurrence: RU)
  Receive Date: 20210503
  Receipt Date: 20210503
  Transmission Date: 20210717
  Serious: Yes (Other)
  Sender: FDA-Public Use
  Company Number: NVSC2021RU095849

PATIENT
  Age: 59 Year
  Weight: 80 kg

DRUGS (2)
  1. EDICIN [Suspect]
     Active Substance: VANCOMYCIN HYDROCHLORIDE
     Indication: BACTERIURIA
     Dosage: 1 G, BID
     Route: 041
     Dates: start: 20210422, end: 20210422
  2. INVANZ [Concomitant]
     Active Substance: ERTAPENEM SODIUM
     Indication: BACTERIURIA
     Dosage: 1 G, QD
     Route: 041
     Dates: start: 20210422

REACTIONS (1)
  - Paraesthesia [Recovered/Resolved]

NARRATIVE: CASE EVENT DATE: 20210422
